FAERS Safety Report 9536829 (Version 4)
Quarter: 2014Q2

REPORT INFORMATION
  Report Type: Report from Study
  Country: JP (occurrence: JP)
  Receive Date: 20130919
  Receipt Date: 20140502
  Transmission Date: 20141212
  Serious: Yes (Other)
  Sender: FDA-Public Use
  Company Number: JP-AMGEN-JPNCT2013046600

PATIENT
  Age: 71 Year
  Sex: Female
  Weight: 38 kg

DRUGS (16)
  1. DARBEPOETIN ALFA [Suspect]
     Indication: NEPHROGENIC ANAEMIA
     Dosage: 25 MUG, QD
     Route: 058
     Dates: start: 20110129
  2. COMELIAN [Concomitant]
     Indication: GLOMERULONEPHRITIS CHRONIC
     Dosage: UNK
     Route: 048
  3. OLMETEC [Concomitant]
     Dosage: UNK
     Route: 048
  4. ATELEC [Concomitant]
     Dosage: UNK
     Route: 048
  5. LENDORMIN [Concomitant]
     Dosage: UNK
     Route: 048
  6. ALFAROL [Concomitant]
     Dosage: UNK
     Route: 048
  7. KALIMATE [Concomitant]
     Dosage: UNK
     Route: 048
  8. ALLERMIST [Concomitant]
     Dosage: UNK
     Route: 045
  9. LAXOBERON [Concomitant]
     Dosage: UNK
     Route: 048
  10. FERRICON [Concomitant]
     Dosage: UNK
     Route: 042
  11. FERROMIA [Concomitant]
     Dosage: UNK
     Route: 048
  12. MUCOSOLVAN [Concomitant]
     Dosage: UNK
     Route: 048
  13. ALLEGRA [Concomitant]
     Dosage: UNK
     Route: 048
  14. KAYEXALATE [Concomitant]
     Dosage: UNK
     Route: 048
  15. DIART [Concomitant]
     Indication: GLOMERULONEPHRITIS CHRONIC
     Dosage: UNK
     Route: 048
  16. LIVALO [Concomitant]
     Dosage: UNK
     Route: 048

REACTIONS (6)
  - Blood pressure increased [Recovered/Resolved]
  - Pharyngitis [Recovered/Resolved]
  - Enterocolitis [Recovered/Resolved]
  - Hypogeusia [Recovered/Resolved]
  - Diarrhoea [Recovering/Resolving]
  - Hypercholesterolaemia [Recovering/Resolving]
